FAERS Safety Report 7491104-8 (Version None)
Quarter: 2011Q2

REPORT INFORMATION
  Report Type: 
  Country: None (occurrence: None)
  Receive Date: 20110519
  Receipt Date: 20110512
  Transmission Date: 20111010
  Serious: Yes (Hospitalization)
  Sender: FDA-Public Use
  Company Number: US-B.I. PHARMACEUTICALS,INC./RIDGEFIELD-2011-BP-12119BP

PATIENT
  Sex: Male

DRUGS (10)
  1. GLUCOSAMINE/CONDROTIN [Concomitant]
  2. SPIRIVA [Suspect]
     Indication: CHRONIC OBSTRUCTIVE PULMONARY DISEASE
  3. ASPIRIN [Concomitant]
     Dosage: 81 MG
  4. SIMVASTATIN [Concomitant]
     Dosage: 20 MG
  5. PRADAXA [Concomitant]
  6. SPIRIVA [Suspect]
     Indication: LUNG DISORDER
  7. PROSCAR [Concomitant]
     Dosage: 5 MG
  8. ALBUTEROL [Concomitant]
  9. LOVAZA [Concomitant]
  10. COUMADIN [Concomitant]
     Dosage: 5 MG

REACTIONS (1)
  - DRUG EFFECT DECREASED [None]
